FAERS Safety Report 9114778 (Version 1)
Quarter: 2013Q1

REPORT INFORMATION
  Report Type: Spontaneous
  Country: US (occurrence: None)
  Receive Date: 20130129
  Receipt Date: 20130129
  Transmission Date: 20140127
  Serious: No
  Sender: FDA-Public Use
  Company Number: AUR-APL-2013-00867

PATIENT
  Age: 48 Year
  Sex: Male

DRUGS (5)
  1. VENLAFAXINE (VENLAFAXINE) [Suspect]
     Indication: PRODUCT USED FOR UNKNOWN INDICATION
     Dosage: (300 MG, 1 D), UNKNOWN
  2. BUPROPION (BUPROPION) [Suspect]
     Indication: ANXIETY
  3. CLONAZEPAM (CLONAZEPAM) (CLONAZEPAM) [Suspect]
     Indication: PRODUCT USED FOR UNKNOWN INDICATION
  4. HYDROXYZINE (HYDROXYZINE) [Concomitant]
  5. METOPROLOL TARTRATE (METOPROLOL TARTRATE) [Concomitant]

REACTIONS (7)
  - Hallucination, auditory [None]
  - Substance-induced psychotic disorder [None]
  - Treatment noncompliance [None]
  - Hallucination, visual [None]
  - Delusion [None]
  - Abnormal behaviour [None]
  - Confusional state [None]
